FAERS Safety Report 15307585 (Version 1)
Quarter: 2018Q3

REPORT INFORMATION
  Report Type: Spontaneous
  Country: HR (occurrence: HR)
  Receive Date: 20180822
  Receipt Date: 20180822
  Transmission Date: 20181010
  Serious: Yes (Other)
  Sender: FDA-Public Use
  Company Number: HR-BAYER-2018-153377

PATIENT
  Sex: Female

DRUGS (3)
  1. METHOTREXATE [METHOTREXATE] [Suspect]
     Active Substance: METHOTREXATE
     Dosage: 15 MG, QD
     Route: 048
     Dates: start: 20180516, end: 20180516
  2. ASPIRIN. [Suspect]
     Active Substance: ASPIRIN
     Dosage: 5000 MG, QD
     Route: 048
     Dates: start: 20180516, end: 20180516
  3. COAXIL [Suspect]
     Active Substance: TIANEPTINE SODIUM
     Dosage: 87.5 MG, QD
     Route: 048
     Dates: start: 20180516, end: 20180516

REACTIONS (3)
  - Suicide attempt [Unknown]
  - Somnolence [Unknown]
  - Intentional overdose [Unknown]

NARRATIVE: CASE EVENT DATE: 20180516
